FAERS Safety Report 6274528-6 (Version None)
Quarter: 2009Q3

REPORT INFORMATION
  Report Type: 
  Country: None (occurrence: None)
  Receive Date: 20090720
  Receipt Date: 20090709
  Transmission Date: 20100115
  Serious: Yes (Hospitalization)
  Sender: FDA-Public Use
  Company Number: JP-MERCK-0907USA00615

PATIENT
  Age: 64 Year
  Sex: Male

DRUGS (6)
  1. FOSAMAX [Suspect]
     Indication: OSTEOPOROSIS PROPHYLAXIS
     Route: 048
     Dates: start: 20090401, end: 20090626
  2. PREDNISOLONE [Concomitant]
     Route: 048
  3. THEOLONG [Concomitant]
     Route: 048
  4. TAKEPRON [Concomitant]
     Route: 048
  5. ACTOS [Concomitant]
     Route: 048
  6. BASEN OD [Concomitant]
     Route: 048

REACTIONS (2)
  - DYSCHEZIA [None]
  - URINARY RETENTION [None]
